FAERS Safety Report 6384927-X (Version None)
Quarter: 2009Q4

REPORT INFORMATION
  Report Type: 
  Country: None (occurrence: None)
  Receive Date: 20091002
  Receipt Date: 20090713
  Transmission Date: 20100525
  Serious: No
  Sender: FDA-Public Use
  Company Number: A0795255A

PATIENT
  Age: 80 Year
  Sex: Male

DRUGS (14)
  1. REQUIP XL [Suspect]
     Indication: PARKINSON'S DISEASE
     Route: 048
     Dates: start: 20080101
  2. CARBIDOPA [Concomitant]
  3. LEVOTHYROXINE SODIUM [Concomitant]
  4. SIMVASTATIN [Concomitant]
  5. AMLODIPINE BESYLATE [Concomitant]
  6. DIOVAN [Concomitant]
  7. METOPROLOL [Concomitant]
  8. ASPIRIN [Concomitant]
  9. AMOXICILLIN [Concomitant]
     Indication: DENTAL DISORDER PROPHYLAXIS
  10. M.V.I. [Concomitant]
  11. FISH OIL [Concomitant]
  12. COQ-10 [Concomitant]
  13. VITAMIN D3 [Concomitant]
  14. LEVODOPA [Concomitant]

REACTIONS (1)
  - INSOMNIA [None]
